FAERS Safety Report 4732609-X (Version None)
Quarter: 2005Q3

REPORT INFORMATION
  Report Type: 
  Country: None (occurrence: None)
  Receive Date: 20050801
  Receipt Date: 20050720
  Transmission Date: 20060218
  Serious: Yes (Hospitalization)
  Sender: FDA-Public Use
  Company Number: MEDI-0003561

PATIENT
  Age: 61 Year
  Sex: Female

DRUGS (3)
  1. ETHYOL [Suspect]
     Dosage: 500 MG, SUBCUTANEOUS
     Route: 058
     Dates: start: 20050630, end: 20050713
  2. LISINOPRIL [Concomitant]
  3. METOPROLOL TARTRATE [Concomitant]

REACTIONS (6)
  - COLD SWEAT [None]
  - HYPOTENSION [None]
  - LETHARGY [None]
  - MEDICATION ERROR [None]
  - SUBCLAVIAN VEIN THROMBOSIS [None]
  - TREATMENT NONCOMPLIANCE [None]
